FAERS Safety Report 8494327-4 (Version None)
Quarter: 2012Q3

REPORT INFORMATION
  Report Type: 
  Country: None (occurrence: None)
  Receive Date: 20120709
  Receipt Date: 20120702
  Transmission Date: 20120928
  Serious: Yes (Hospitalization)
  Sender: FDA-Public Use
  Company Number: BR-US-EMD SERONO, INC.-7144886

PATIENT
  Sex: Female

DRUGS (2)
  1. REBIF [Suspect]
  2. REBIF [Suspect]
     Indication: RELAPSING-REMITTING MULTIPLE SCLEROSIS
     Dates: start: 20070510

REACTIONS (2)
  - CENTRAL NERVOUS SYSTEM LESION [None]
  - MULTIPLE SCLEROSIS RELAPSE [None]
